FAERS Safety Report 7553743-5 (Version None)
Quarter: 2011Q2

REPORT INFORMATION
  Report Type: 
  Country: None (occurrence: None)
  Receive Date: 20110617
  Receipt Date: 20110613
  Transmission Date: 20111010
  Serious: Yes (Death)
  Sender: FDA-Public Use
  Company Number: US-AMGEN-USASP2011030419

PATIENT
  Age: 62 Year
  Sex: Female

DRUGS (3)
  1. IVIGLOB-EX [Concomitant]
  2. NPLATE [Suspect]
     Indication: IDIOPATHIC THROMBOCYTOPENIC PURPURA
     Dosage: 3.3 A?G/KG, UNK
     Dates: start: 20110502, end: 20110516
  3. CORTICOSTEROIDS [Concomitant]

REACTIONS (2)
  - RENAL FAILURE CHRONIC [None]
  - MULTIPLE MYELOMA [None]
